FAERS Safety Report 19062922 (Version 3)
Quarter: 2021Q2

REPORT INFORMATION
  Report Type: Spontaneous
  Country: ES (occurrence: ES)
  Receive Date: 20210326
  Receipt Date: 20210525
  Transmission Date: 20210717
  Serious: Yes (Life-Threatening, Hospitalization)
  Sender: FDA-Public Use
  Company Number: ES-VERTEX PHARMACEUTICALS-2021-004694

PATIENT
  Age: 25 Year
  Sex: Female
  Weight: 37.5 kg

DRUGS (10)
  1. SUPRADYN [MINERALS NOS;VITAMINS NOS] [Concomitant]
     Dosage: 1 DOSAGE FORM, QD ( 1 TABLET AT BREAKFAST )
  2. AUXINA A MASIVA [RETINOL PALMITATE] [Concomitant]
     Dosage: 1 DOSAGE FORM, QD (1 CAPSULE AT BREAKFAST )
  3. KONAKION [Concomitant]
     Active Substance: PHYTONADIONE
     Indication: VITAMIN K DEFICIENCY
     Dosage: UNK UNK, QD
  4. KREON 25000 [Concomitant]
     Active Substance: PANCRELIPASE
     Dosage: 8:00HR: 2,11:00HR: 1,14:00HR: 2,17:00HR: 1,20:00HR: 2,
  5. GLUCERNA [Concomitant]
     Active Substance: AMINO ACIDS\DEXTROSE\ELECTROLYTES NOS\SOYBEAN OIL\VITAMINS
     Dosage: ACCORDING TO NUTRITION 220 ML: 1 OVERNIGHT PER PEG
  6. SYMKEVI [Suspect]
     Active Substance: IVACAFTOR\TEZACAFTOR
     Indication: CYSTIC FIBROSIS
     Dosage: 1 DOSAGE FORM, QD (IN THE MORNING)
     Route: 048
     Dates: start: 20200204
  7. KALYDECO [Suspect]
     Active Substance: IVACAFTOR
     Indication: CYSTIC FIBROSIS
     Dosage: 150 MG, QD (IN THE DINNER)
     Route: 048
     Dates: start: 20200204
  8. AUXINA E [Concomitant]
     Dosage: 200 MG, QD ( 200 MG, 1 CAPSULE AT BREAKFAST )
  9. LEVEMIR [Concomitant]
     Active Substance: INSULIN DETEMIR
     Dosage: WITH NO CHANGES IN BREAKFAST AND DINNER
  10. APIDRA [Concomitant]
     Active Substance: INSULIN GLULISINE

REACTIONS (7)
  - Pulmonary function test decreased [Not Recovered/Not Resolved]
  - Bronchiectasis [Unknown]
  - Alanine aminotransferase increased [Unknown]
  - Weight decreased [Not Recovered/Not Resolved]
  - Mycoplasma test positive [Unknown]
  - Gamma-glutamyltransferase increased [Unknown]
  - Haemoptysis [Recovered/Resolved]

NARRATIVE: CASE EVENT DATE: 2020
